FAERS Safety Report 20778512 (Version 1)
Quarter: 2022Q2

REPORT INFORMATION
  Report Type: Spontaneous
  Country: US (occurrence: None)
  Receive Date: 20220503
  Receipt Date: 20220503
  Transmission Date: 20220721
  Serious: No
  Sender: FDA-Public Use
  Company Number: None

PATIENT
  Age: 50 Year
  Sex: Female
  Weight: 95.4 kg

DRUGS (6)
  1. CORLANOR [Suspect]
     Active Substance: IVABRADINE HYDROCHLORIDE
     Indication: Sinus tachycardia
     Dosage: OTHER QUANTITY : 1 TABLET(S);?FREQUENCY : TWICE A DAY;?
     Route: 048
     Dates: start: 20210601, end: 20220301
  2. Losartan Potassium 50 MG [Concomitant]
  3. Atorvastatin Calcium 10MG [Concomitant]
  4. Victoza 1.8 Metformin HCI 24HR 500 MG [Concomitant]
  5. Furosemide 40 MG every 48 hours [Concomitant]
  6. Super B-Complex [Concomitant]

REACTIONS (2)
  - Photopsia [None]
  - Therapy interrupted [None]

NARRATIVE: CASE EVENT DATE: 20220502
